FAERS Safety Report 24966325 (Version 2)
Quarter: 2025Q3

REPORT INFORMATION
  Report Type: Spontaneous
  Country: RU (occurrence: RU)
  Receive Date: 20250213
  Receipt Date: 20250809
  Transmission Date: 20251020
  Serious: Yes (Other)
  Sender: ALEXION PHARMACEUTICALS
  Company Number: RU-ASTRAZENECA-202501RUS029795RU

PATIENT
  Age: 69 Year
  Sex: Female

DRUGS (1)
  1. OLAPARIB [Suspect]
     Active Substance: OLAPARIB
     Indication: Targeted cancer therapy
     Dosage: 300 MILLIGRAM, BID
     Dates: start: 20240117

REACTIONS (5)
  - Abdominal mass [Unknown]
  - Cystic fibrosis pancreatic [Unknown]
  - Effusion [Unknown]
  - Pulmonary fibrosis [Unknown]
  - Blister [Unknown]
